FAERS Safety Report 14673943 (Version 6)
Quarter: 2019Q1

REPORT INFORMATION
  Report Type: Report from Study
  Country: FR (occurrence: FR)
  Receive Date: 20180323
  Receipt Date: 20190104
  Transmission Date: 20190417
  Serious: Yes (Hospitalization)
  Sender: FDA-Public Use
  Company Number: PHHO2018FR003848

PATIENT
  Age: 47 Year
  Sex: Female
  Weight: 48 kg

DRUGS (5)
  1. CYTARABINE. [Concomitant]
     Active Substance: CYTARABINE
     Indication: PRODUCT USED FOR UNKNOWN INDICATION
     Dosage: 9080 MG, UNK
     Route: 042
     Dates: start: 20171022, end: 20180206
  2. AMN107 [Suspect]
     Active Substance: NILOTINIB
     Indication: PHILADELPHIA CHROMOSOME POSITIVE
     Dosage: UNK
     Route: 048
     Dates: start: 20171022
  3. METHOTREXATE. [Concomitant]
     Active Substance: METHOTREXATE
     Indication: PRODUCT USED FOR UNKNOWN INDICATION
     Dosage: 1510 MG, UNK
     Route: 042
     Dates: start: 20171022, end: 20180203
  4. SPRYCEL [Concomitant]
     Active Substance: DASATINIB
     Indication: PRODUCT USED FOR UNKNOWN INDICATION
     Dosage: UNK
     Route: 065
     Dates: start: 20171022
  5. CYCLOPHOSPHAMIDE. [Concomitant]
     Active Substance: CYCLOPHOSPHAMIDE
     Indication: PRODUCT USED FOR UNKNOWN INDICATION
     Dosage: 3000 MG, QD
     Route: 042
     Dates: start: 20180331, end: 20180401

REACTIONS (2)
  - Escherichia pyelonephritis [Recovered/Resolved]
  - Device related sepsis [Recovered/Resolved]

NARRATIVE: CASE EVENT DATE: 20180310
